FAERS Safety Report 9813304 (Version 1)
Quarter: 2014Q1

REPORT INFORMATION
  Report Type: Spontaneous
  Country: US (occurrence: US)
  Receive Date: 20140113
  Receipt Date: 20140113
  Transmission Date: 20141002
  Serious: Yes (Hospitalization)
  Sender: FDA-Public Use
  Company Number: US-BAXTER-2014BAX000703

PATIENT
  Age: 69 Year
  Sex: Male

DRUGS (3)
  1. DIANEAL LOW CALCIUM [Suspect]
     Indication: PERITONEAL DIALYSIS
     Route: 033
  2. DIANEAL LOW CALCIUM [Suspect]
     Indication: PERITONEAL DIALYSIS
     Route: 033
  3. GENTAMYCIN [Suspect]
     Indication: ABDOMINAL PAIN
     Route: 033
     Dates: start: 20131217

REACTIONS (3)
  - Peritonitis [Recovering/Resolving]
  - Mycobacterial infection [Recovering/Resolving]
  - Peritoneal dialysis complication [Recovered/Resolved]
